FAERS Safety Report 23715634 (Version 1)
Quarter: 2024Q2

REPORT INFORMATION
  Report Type: Spontaneous
  Country: US (occurrence: US)
  Receive Date: 20240408
  Receipt Date: 20240408
  Transmission Date: 20240715
  Serious: No
  Sender: FDA-Public Use
  Company Number: US-AMGEN-USASP2024068836

PATIENT
  Age: 56 Year
  Sex: Female

DRUGS (3)
  1. EVENITY [Suspect]
     Active Substance: ROMOSOZUMAB-AQQG
     Indication: Osteoporosis
     Dosage: UNK, QMO
     Route: 065
     Dates: start: 202310
  2. APO VALSARTAN/HCTZ [Concomitant]
     Indication: Hypertension
     Dosage: 80-12.5 MG IN THE MORNING (QD)
  3. APO VALSARTAN/HCTZ [Concomitant]
     Dosage: 80-12.5 MG IN THE MORNING (QD), TOOK SECOND DOSE
     Dates: start: 20240403

REACTIONS (2)
  - Hypertension [Recovered/Resolved]
  - Headache [Not Recovered/Not Resolved]

NARRATIVE: CASE EVENT DATE: 20230101
